FAERS Safety Report 25012856 (Version 1)
Quarter: 2025Q1

REPORT INFORMATION
  Report Type: Spontaneous
  Country: FR (occurrence: FR)
  Receive Date: 20250226
  Receipt Date: 20250226
  Transmission Date: 20250409
  Serious: Yes (Hospitalization)
  Sender: MYLAN
  Company Number: None

PATIENT
  Age: 52 Year
  Sex: Male

DRUGS (32)
  1. VERAPAMIL [Suspect]
     Active Substance: VERAPAMIL HYDROCHLORIDE
     Indication: Hypertension
  2. VERAPAMIL [Suspect]
     Active Substance: VERAPAMIL HYDROCHLORIDE
     Route: 048
  3. VERAPAMIL [Suspect]
     Active Substance: VERAPAMIL HYDROCHLORIDE
     Route: 048
  4. VERAPAMIL [Suspect]
     Active Substance: VERAPAMIL HYDROCHLORIDE
  5. COVERAM [Suspect]
     Active Substance: AMLODIPINE\PERINDOPRIL
     Indication: Hypertension
     Dates: start: 20240909, end: 20240911
  6. COVERAM [Suspect]
     Active Substance: AMLODIPINE\PERINDOPRIL
     Route: 048
     Dates: start: 20240909, end: 20240911
  7. COVERAM [Suspect]
     Active Substance: AMLODIPINE\PERINDOPRIL
     Route: 048
     Dates: start: 20240909, end: 20240911
  8. COVERAM [Suspect]
     Active Substance: AMLODIPINE\PERINDOPRIL
     Dates: start: 20240909, end: 20240911
  9. ALDACTONE [Suspect]
     Active Substance: SPIRONOLACTONE
     Indication: Hypertension
     Dates: start: 20240909, end: 20240913
  10. ALDACTONE [Suspect]
     Active Substance: SPIRONOLACTONE
     Route: 048
     Dates: start: 20240909, end: 20240913
  11. ALDACTONE [Suspect]
     Active Substance: SPIRONOLACTONE
     Route: 048
     Dates: start: 20240909, end: 20240913
  12. ALDACTONE [Suspect]
     Active Substance: SPIRONOLACTONE
     Dates: start: 20240909, end: 20240913
  13. AMLODIPINE BESYLATE [Concomitant]
     Active Substance: AMLODIPINE BESYLATE
  14. AMLODIPINE BESYLATE [Concomitant]
     Active Substance: AMLODIPINE BESYLATE
     Route: 048
  15. AMLODIPINE BESYLATE [Concomitant]
     Active Substance: AMLODIPINE BESYLATE
     Route: 048
  16. AMLODIPINE BESYLATE [Concomitant]
     Active Substance: AMLODIPINE BESYLATE
  17. HYDROCHLOROTHIAZIDE [Concomitant]
     Active Substance: HYDROCHLOROTHIAZIDE
  18. HYDROCHLOROTHIAZIDE [Concomitant]
     Active Substance: HYDROCHLOROTHIAZIDE
     Route: 048
  19. HYDROCHLOROTHIAZIDE [Concomitant]
     Active Substance: HYDROCHLOROTHIAZIDE
     Route: 048
  20. HYDROCHLOROTHIAZIDE [Concomitant]
     Active Substance: HYDROCHLOROTHIAZIDE
  21. VALSARTAN [Concomitant]
     Active Substance: VALSARTAN
  22. VALSARTAN [Concomitant]
     Active Substance: VALSARTAN
     Route: 048
  23. VALSARTAN [Concomitant]
     Active Substance: VALSARTAN
     Route: 048
  24. VALSARTAN [Concomitant]
     Active Substance: VALSARTAN
  25. URAPIDIL [Concomitant]
     Active Substance: URAPIDIL
  26. URAPIDIL [Concomitant]
     Active Substance: URAPIDIL
     Route: 048
  27. URAPIDIL [Concomitant]
     Active Substance: URAPIDIL
     Route: 048
  28. URAPIDIL [Concomitant]
     Active Substance: URAPIDIL
  29. POTASSIUM CHLORIDE [Concomitant]
     Active Substance: POTASSIUM CHLORIDE
  30. POTASSIUM CHLORIDE [Concomitant]
     Active Substance: POTASSIUM CHLORIDE
     Route: 048
  31. POTASSIUM CHLORIDE [Concomitant]
     Active Substance: POTASSIUM CHLORIDE
     Route: 048
  32. POTASSIUM CHLORIDE [Concomitant]
     Active Substance: POTASSIUM CHLORIDE

REACTIONS (2)
  - Diarrhoea [Recovered/Resolved]
  - Eosinophilia [Recovered/Resolved]

NARRATIVE: CASE EVENT DATE: 20240910
